FAERS Safety Report 14471341 (Version 1)
Quarter: 2018Q1

REPORT INFORMATION
  Report Type: Spontaneous
  Country: US (occurrence: US)
  Receive Date: 20180130
  Receipt Date: 20180130
  Transmission Date: 20180509
  Serious: Yes (Other)
  Sender: FDA-Public Use
  Company Number: None

PATIENT
  Age: 26 Year
  Sex: Female
  Weight: 81 kg

DRUGS (5)
  1. MONTELUKAST SODIUM. [Suspect]
     Active Substance: MONTELUKAST SODIUM
     Indication: RESPIRATORY TRACT CONGESTION
     Dosage: ?          QUANTITY:1 TABLET(S);?
     Route: 048
     Dates: start: 20150301, end: 20180115
  2. PREVIFEM [Concomitant]
     Active Substance: ETHINYL ESTRADIOL\NORGESTIMATE
  3. LEFLONOMIDE [Concomitant]
  4. LEVOTHYROXIN [Concomitant]
     Active Substance: LEVOTHYROXINE
  5. MELOXICAM. [Concomitant]
     Active Substance: MELOXICAM

REACTIONS (10)
  - Head injury [None]
  - Anhedonia [None]
  - Eye haemorrhage [None]
  - Screaming [None]
  - Emotional disorder [None]
  - Nightmare [None]
  - Aggression [None]
  - Psychotic disorder [None]
  - Head titubation [None]
  - Mydriasis [None]

NARRATIVE: CASE EVENT DATE: 20180115
